FAERS Safety Report 4476517-0 (Version None)
Quarter: 2004Q4

REPORT INFORMATION
  Report Type: 
  Country: None (occurrence: None)
  Receive Date: 20041013
  Receipt Date: 20040929
  Transmission Date: 20050328
  Serious: Yes (Death)
  Sender: FDA-Public Use
  Company Number: USA040360918

PATIENT
  Age: 43 Year
  Sex: Female
  Weight: 45 kg

DRUGS (2)
  1. ZYPREXA [Suspect]
     Indication: BIPOLAR DISORDER
     Dosage: 10 MG/EVERY DAY
  2. PROZAC [Suspect]
     Dosage: 40 MG

REACTIONS (3)
  - ALCOHOLISM [None]
  - ARRHYTHMIA [None]
  - SUDDEN DEATH [None]
